FAERS Safety Report 6100455-0 (Version None)
Quarter: 2009Q1

REPORT INFORMATION
  Report Type: 
  Country: None (occurrence: None)
  Receive Date: 20090227
  Receipt Date: 20090227
  Transmission Date: 20090719
  Serious: Yes (Other)
  Sender: FDA-Public Use
  Company Number: None

PATIENT
  Age: 59 Year
  Sex: Female
  Weight: 67.1324 kg

DRUGS (1)
  1. BUPROPION HCL [Suspect]
     Indication: DEPRESSION
     Dosage: 300 ONCE DAILY PO
     Route: 048
     Dates: start: 20090125, end: 20090215

REACTIONS (2)
  - DEPRESSION [None]
  - DISEASE RECURRENCE [None]
